FAERS Safety Report 14299584 (Version 3)
Quarter: 2019Q4

REPORT INFORMATION
  Report Type: Report from Study
  Country: US (occurrence: US)
  Receive Date: 20171219
  Receipt Date: 20191208
  Transmission Date: 20200122
  Serious: Yes (Other)
  Sender: FDA-Public Use
  Company Number: US-TEVA-2017-US-836924

PATIENT
  Age: 48 Year
  Sex: Female

DRUGS (1)
  1. AUSTEDO [Suspect]
     Active Substance: DEUTETRABENAZINE
     Indication: TARDIVE DYSKINESIA
     Dosage: 12 MILLIGRAM DAILY; TITRATION
     Route: 065
     Dates: start: 20171129

REACTIONS (11)
  - Chromaturia [Unknown]
  - Sedation [Unknown]
  - Loss of personal independence in daily activities [Unknown]
  - Back pain [Unknown]
  - Loss of consciousness [Unknown]
  - Dizziness [Unknown]
  - Micturition urgency [Unknown]
  - Malaise [Unknown]
  - Contusion [Unknown]
  - Flank pain [Unknown]
  - Fall [Unknown]

NARRATIVE: CASE EVENT DATE: 20171129
